FAERS Safety Report 16223709 (Version 1)
Quarter: 2019Q2

REPORT INFORMATION
  Report Type: Spontaneous
  Country: GB (occurrence: GB)
  Receive Date: 20190422
  Receipt Date: 20190422
  Transmission Date: 20190711
  Serious: Yes (Hospitalization, Other)
  Sender: FDA-Public Use
  Company Number: PHHY2019GB090355

PATIENT
  Age: 5 Month
  Sex: Female

DRUGS (1)
  1. IOPIDINE [Suspect]
     Active Substance: APRACLONIDINE HYDROCHLORIDE
     Indication: PRODUCT USED FOR UNKNOWN INDICATION
     Dosage: 2 GTT, UNK (EACH EYE)
     Route: 047

REACTIONS (6)
  - Pallor [Unknown]
  - Circulatory collapse [Unknown]
  - Bradycardia [Unknown]
  - Hypoxia [Unknown]
  - Apnoea [Unknown]
  - Listless [Unknown]

NARRATIVE: CASE EVENT DATE: 20181212
